FAERS Safety Report 17615004 (Version 2)
Quarter: 2020Q2

REPORT INFORMATION
  Report Type: Spontaneous
  Country: US (occurrence: US)
  Receive Date: 20200402
  Receipt Date: 20200408
  Transmission Date: 20200713
  Serious: No
  Sender: FDA-Public Use
  Company Number: US-PFIZER INC-2020113605

PATIENT
  Age: 70 Year
  Sex: Female
  Weight: 82 kg

DRUGS (3)
  1. PERCOCET [Concomitant]
     Active Substance: ACETAMINOPHEN\OXYCODONE HYDROCHLORIDE
     Indication: PAIN
     Dosage: 15 MG, AS NEEDED
     Dates: start: 2009
  2. BACLOFEN. [Concomitant]
     Active Substance: BACLOFEN
     Indication: MYALGIA
     Dosage: 5 MG, AS NEEDED
     Dates: start: 2019
  3. XELJANZ XR [Suspect]
     Active Substance: TOFACITINIB CITRATE
     Indication: RHEUMATOID ARTHRITIS
     Dosage: 0.5 DF, DAILY
     Route: 048
     Dates: start: 20200313

REACTIONS (5)
  - Malaise [Unknown]
  - Product dispensing error [Unknown]
  - Joint instability [Unknown]
  - Product prescribing error [Unknown]
  - Rash [Unknown]

NARRATIVE: CASE EVENT DATE: 202003
